FAERS Safety Report 6286532-2 (Version None)
Quarter: 2009Q3

REPORT INFORMATION
  Report Type: 
  Country: None (occurrence: None)
  Receive Date: 20090727
  Receipt Date: 20090727
  Transmission Date: 20100115
  Serious: Yes (Hospitalization)
  Sender: FDA-Public Use
  Company Number: None

PATIENT
  Age: 75 Year
  Sex: Female
  Weight: 68.4932 kg

DRUGS (3)
  1. PREDNISONE TAB [Suspect]
     Indication: SWELLING
     Dates: start: 20090619
  2. BENADRYL [Suspect]
     Indication: PRURITUS
     Dates: start: 20090621
  3. BENADRYL [Suspect]
     Indication: SWELLING
     Dates: start: 20090621

REACTIONS (7)
  - ERYTHEMA [None]
  - FEELING HOT [None]
  - FOREIGN BODY TRAUMA [None]
  - MYOCARDIAL INFARCTION [None]
  - OEDEMA PERIPHERAL [None]
  - PRURITUS [None]
  - SKIN WARM [None]
